FAERS Safety Report 6448277-5 (Version None)
Quarter: 2009Q4

REPORT INFORMATION
  Report Type: 
  Country: None (occurrence: None)
  Receive Date: 20091120
  Receipt Date: 20091108
  Transmission Date: 20100525
  Serious: Yes (Hospitalization)
  Sender: FDA-Public Use
  Company Number: US-B.I. PHARMACEUTICALS,INC./RIDGEFIELD-2009-BP-05959BP

PATIENT
  Sex: Female

DRUGS (3)
  1. DULCOLAX [Suspect]
     Indication: CONSTIPATION
     Dosage: 15 MG
     Route: 048
     Dates: start: 19840101, end: 19930101
  2. DULCOLAX [Suspect]
     Route: 048
     Dates: start: 19930101
  3. SODIUM SOLUTION [Suspect]
     Indication: COLONOSCOPY
     Dates: start: 20091001, end: 20091001

REACTIONS (10)
  - ATRIAL FIBRILLATION [None]
  - BLOOD DISORDER [None]
  - BLOOD PRESSURE FLUCTUATION [None]
  - BLOOD PRESSURE INCREASED [None]
  - BOWEL MOVEMENT IRREGULARITY [None]
  - CARDIAC FAILURE CONGESTIVE [None]
  - HEART RATE INCREASED [None]
  - MEDICATION ERROR [None]
  - NAUSEA [None]
  - TREMOR [None]
